FAERS Safety Report 8432791-7 (Version None)
Quarter: 2012Q2

REPORT INFORMATION
  Report Type: 
  Country: None (occurrence: None)
  Receive Date: 20120613
  Receipt Date: 20120606
  Transmission Date: 20120825
  Serious: Yes (Other)
  Sender: FDA-Public Use
  Company Number: US-PFIZER INC-2012137357

PATIENT

DRUGS (3)
  1. POTASSIUM PENICILLIN G [Suspect]
     Dosage: UNK
  2. IRON [Suspect]
     Dosage: UNK
  3. NITROGLYCERIN [Suspect]
     Dosage: UNK

REACTIONS (1)
  - ANAPHYLACTIC SHOCK [None]
